FAERS Safety Report 15438701 (Version 3)
Quarter: 2018Q4

REPORT INFORMATION
  Report Type: Spontaneous
  Country: US (occurrence: US)
  Receive Date: 20180928
  Receipt Date: 20181008
  Transmission Date: 20190204
  Serious: Yes (Hospitalization)
  Sender: FDA-Public Use
  Company Number: US-ROCHE-2188037

PATIENT
  Age: 60 Year
  Sex: Female

DRUGS (2)
  1. OCREVUS [Suspect]
     Active Substance: OCRELIZUMAB
     Dosage: SECOND SPLIT DOSE
     Route: 065
     Dates: start: 201806
  2. OCREVUS [Suspect]
     Active Substance: OCRELIZUMAB
     Indication: MULTIPLE SCLEROSIS
     Dosage: FIRST SPLIT DOSE
     Route: 065
     Dates: start: 201806

REACTIONS (4)
  - Gait disturbance [Unknown]
  - Metabolic encephalopathy [Unknown]
  - Ammonia increased [Unknown]
  - Confusional state [Unknown]

NARRATIVE: CASE EVENT DATE: 201808
